FAERS Safety Report 6248174-4 (Version None)
Quarter: 2009Q2

REPORT INFORMATION
  Report Type: 
  Country: None (occurrence: None)
  Receive Date: 20090624
  Receipt Date: 20090624
  Transmission Date: 20091009
  Serious: Yes (Other)
  Sender: FDA-Public Use
  Company Number: None

PATIENT
  Sex: Female
  Weight: 58.0604 kg

DRUGS (1)
  1. SAVELLA [Suspect]
     Dosage: 12.25 - 25 MG TWICE DAY
     Dates: start: 20090625, end: 20090702

REACTIONS (8)
  - ABDOMINAL DISCOMFORT [None]
  - CONSTIPATION [None]
  - DEPRESSION [None]
  - FEELING ABNORMAL [None]
  - HOT FLUSH [None]
  - INSOMNIA [None]
  - IRRITABILITY [None]
  - PALPITATIONS [None]
